FAERS Safety Report 11980444 (Version 1)
Quarter: 2016Q1

REPORT INFORMATION
  Report Type: Spontaneous
  Country: US (occurrence: US)
  Receive Date: 20160129
  Receipt Date: 20160129
  Transmission Date: 20160526
  Serious: No
  Sender: FDA-Public Use
  Company Number: US-PFIZER INC-2016000548

PATIENT
  Age: 71 Year
  Sex: Female

DRUGS (7)
  1. NORVASC [Suspect]
     Active Substance: AMLODIPINE BESYLATE
     Indication: HYPERTENSION
     Dosage: 5MG 1/2 TABLET TWICE A DAY
     Route: 048
  2. SYNTHROID [Concomitant]
     Active Substance: LEVOTHYROXINE SODIUM
     Indication: BASEDOW^S DISEASE
     Dosage: 50MG TABLET BY MOUTH; 1.5 TABLET IN THE MORNING AND 1 TABLET IN THE EVENING
     Route: 048
  3. NORVASC [Suspect]
     Active Substance: AMLODIPINE BESYLATE
     Dosage: 5MG, 3/4 TABLET IN THE MORNING AND 1/2 TABLET IN THE EVENING.
     Route: 048
  4. TENORMIN [Concomitant]
     Active Substance: ATENOLOL
     Indication: HYPERTENSION
     Dosage: 50MG TABLET; 1.5 TABLET IN THE MORNING AND 1 TABLET IN THE EVENING BY MOUTH
     Route: 048
  5. XANAX [Concomitant]
     Active Substance: ALPRAZOLAM
     Indication: DEPRESSION
     Dosage: 0.5MG TABLET 2-3 TIMES A DAY BY MOUTH
     Route: 048
  6. NORVASC [Suspect]
     Active Substance: AMLODIPINE BESYLATE
     Dosage: 1.5 TABLETS OF THE 5 MG TABLETS A DAY
     Route: 048
  7. NORVASC [Suspect]
     Active Substance: AMLODIPINE BESYLATE
     Dosage: 5MG 1/2 TABLET IN THE MORNING AND 1/2 TABLET IN THE EVENING
     Route: 048

REACTIONS (6)
  - Blood pressure inadequately controlled [Unknown]
  - Pallor [Not Recovered/Not Resolved]
  - Gait disturbance [Unknown]
  - Yellow skin [Not Recovered/Not Resolved]
  - Inappropriate schedule of drug administration [Unknown]
  - Asthenia [Unknown]

NARRATIVE: CASE EVENT DATE: 2014
